FAERS Safety Report 14108033 (Version 1)
Quarter: 2017Q4

REPORT INFORMATION
  Report Type: Spontaneous
  Country: US (occurrence: US)
  Receive Date: 20171019
  Receipt Date: 20171019
  Transmission Date: 20180321
  Serious: No
  Sender: FDA-Public Use
  Company Number: US-BAYER-2017-200587

PATIENT
  Age: 20 Year
  Sex: Female

DRUGS (1)
  1. SKYLA [Suspect]
     Active Substance: LEVONORGESTREL
     Indication: CONTRACEPTION
     Dosage: 14 MCG/24HR, CONT
     Route: 015
     Dates: start: 20171016, end: 20171016

REACTIONS (5)
  - Chills [None]
  - Procedural pain [None]
  - Procedural dizziness [None]
  - Procedural vomiting [None]
  - Complication of device insertion [None]

NARRATIVE: CASE EVENT DATE: 20171016
